FAERS Safety Report 7923674-7 (Version None)
Quarter: 2011Q4

REPORT INFORMATION
  Report Type: 
  Country: None (occurrence: None)
  Receive Date: 20111117
  Receipt Date: 20110207
  Transmission Date: 20120403
  Serious: No
  Sender: FDA-Public Use
  Company Number: US-AMGEN-USASP2011006798

PATIENT
  Age: 38 Year
  Sex: Female

DRUGS (1)
  1. ENBREL [Suspect]
     Indication: PSORIASIS
     Dosage: 50 MG, 2 TIMES/WK
     Dates: start: 20110201

REACTIONS (6)
  - MENORRHAGIA [None]
  - HEADACHE [None]
  - DRUG INEFFECTIVE [None]
  - INJECTION SITE PAIN [None]
  - RHINORRHOEA [None]
  - MUSCULOSKELETAL PAIN [None]
